FAERS Safety Report 5701830-6 (Version None)
Quarter: 2008Q2

REPORT INFORMATION
  Report Type: 
  Country: None (occurrence: None)
  Receive Date: 20080411
  Receipt Date: 20080411
  Transmission Date: 20081010
  Serious: Yes (Death)
  Sender: FDA-Public Use
  Company Number: None

PATIENT
  Age: 56 Year
  Sex: Male
  Weight: 122.4712 kg

DRUGS (1)
  1. HEPARIN [Suspect]

REACTIONS (3)
  - MULTI-ORGAN FAILURE [None]
  - PHARMACEUTICAL PRODUCT COMPLAINT [None]
  - SUDDEN DEATH [None]
